FAERS Safety Report 14216391 (Version 2)
Quarter: 2018Q1

REPORT INFORMATION
  Report Type: Spontaneous
  Country: HU (occurrence: HU)
  Receive Date: 20171122
  Receipt Date: 20180205
  Transmission Date: 20180508
  Serious: Yes (Death, Hospitalization)
  Sender: FDA-Public Use
  Company Number: HU-PFIZER INC-2017502505

PATIENT
  Age: 14 Year
  Sex: Male

DRUGS (1)
  1. REFACTO AF [Suspect]
     Active Substance: ANTIHEMOPHILIC FACTOR, HUMAN RECOMBINANT RESIDUES 743-1636 DELETED
     Indication: HAEMOPHILIA
     Dosage: 1000 IU,3X PER WEEK
     Route: 042
     Dates: start: 20160215

REACTIONS (1)
  - Ewing^s sarcoma [Fatal]

NARRATIVE: CASE EVENT DATE: 20160412
